FAERS Safety Report 6393976-7 (Version None)
Quarter: 2009Q4

REPORT INFORMATION
  Report Type: 
  Country: None (occurrence: None)
  Receive Date: 20091008
  Receipt Date: 20090316
  Transmission Date: 20100525
  Serious: No
  Sender: FDA-Public Use
  Company Number: US-BRISTOL-MYERS SQUIBB COMPANY-14533921

PATIENT
  Age: 2 Decade

DRUGS (1)
  1. MEGACE [Suspect]

REACTIONS (1)
  - SKIN STRIAE [None]
